FAERS Safety Report 16331935 (Version 1)
Quarter: 2019Q2

REPORT INFORMATION
  Report Type: Spontaneous
  Country: US (occurrence: US)
  Receive Date: 20190412
  Receipt Date: 20190412
  Transmission Date: 20190711
  Serious: No
  Sender: FDA-Public Use
  Company Number: None

PATIENT
  Sex: Female

DRUGS (1)
  1. AUSTEDO [Suspect]
     Active Substance: DEUTETRABENAZINE
     Indication: DYSKINESIA
     Dosage: ?          OTHER FREQUENCY:2TABSAMAND1TBPM ;?
     Route: 048
     Dates: start: 20190131

REACTIONS (3)
  - Drug ineffective [None]
  - Breast swelling [None]
  - Breast pain [None]
